FAERS Safety Report 8748534 (Version 2)
Quarter: 2022Q2

REPORT INFORMATION
  Report Type: Report from Study
  Country: US (occurrence: None)
  Receive Date: 20120827
  Receipt Date: 20220512
  Transmission Date: 20220721
  Serious: Yes (Other)
  Sender: FDA-Public Use
  Company Number: US-ROCHE-1106962

PATIENT
  Age: 72 Year
  Sex: Female
  Weight: 71.6 kg

DRUGS (4)
  1. BEVACIZUMAB [Suspect]
     Active Substance: BEVACIZUMAB
     Indication: Ovarian epithelial cancer
     Dosage: 15 MG/KG IV OVER 30-90 MINUTES ON DAY 1 ON 2 CYCLE ONWARDS?LAST DOSE: 21/JUN/2012
     Route: 042
  2. PACLITAXEL [Suspect]
     Active Substance: PACLITAXEL
     Indication: Ovarian epithelial cancer
     Dosage: 175 MG/M2 OVER 3 HRS ON DAY 1(CYCLE 1-6), 6TH CYCLE COMPLETED ON 16/FEB/2012
     Route: 042
     Dates: start: 20111123
  3. CARBOPLATIN [Suspect]
     Active Substance: CARBOPLATIN
     Indication: Ovarian epithelial cancer
     Dosage: AUC 6 (CYCLE 1-6),6TH CYCLE COMPLETED ON 16/FEB/2012
     Route: 042
     Dates: start: 20111123
  4. IPRATROPIUM [Suspect]
     Active Substance: IPRATROPIUM
     Indication: Product used for unknown indication
     Route: 055

REACTIONS (1)
  - Ventricular arrhythmia [Recovering/Resolving]

NARRATIVE: CASE EVENT DATE: 20120710
